FAERS Safety Report 21445668 (Version 3)
Quarter: 2025Q3

REPORT INFORMATION
  Report Type: Spontaneous
  Country: CA (occurrence: CA)
  Receive Date: 20221012
  Receipt Date: 20250930
  Transmission Date: 20251021
  Serious: Yes (Death, Life-Threatening, Hospitalization, Disabling, Congenital Anomaly, Other)
  Sender: Haleon PLC
  Company Number: CA-002147023-NVSC2022CA109817

PATIENT
  Age: 44 Year
  Sex: Female
  Weight: 97 kg

DRUGS (94)
  1. VOLTAREN ARTHRITIS PAIN [Suspect]
     Active Substance: DICLOFENAC SODIUM
     Indication: Product used for unknown indication
  2. DICLOFENAC SODIUM [Suspect]
     Active Substance: DICLOFENAC SODIUM
     Indication: Product used for unknown indication
     Dosage: 50 MG, Q24H
  3. DICLOFENAC SODIUM [Suspect]
     Active Substance: DICLOFENAC SODIUM
     Route: 048
  4. DICLOFENAC SODIUM [Suspect]
     Active Substance: DICLOFENAC SODIUM
  5. METHOTREXATE [Suspect]
     Active Substance: METHOTREXATE
     Indication: Rheumatoid arthritis
     Dosage: 15 MG, Q24H
     Route: 048
  6. METHOTREXATE [Suspect]
     Active Substance: METHOTREXATE
     Dosage: 25 MG, QW, ROA: SUBCUTANEOUS USE
  7. METHOTREXATE [Suspect]
     Active Substance: METHOTREXATE
     Route: 048
  8. METHOTREXATE [Suspect]
     Active Substance: METHOTREXATE
     Dosage: 2 G, Q24H
  9. METHOTREXATE [Suspect]
     Active Substance: METHOTREXATE
     Dosage: 20 MG, QW, ROA: SUBCUTANEOUS USE
  10. METHOTREXATE [Suspect]
     Active Substance: METHOTREXATE
     Dosage: 20 MG, QW, ROA: SUBCUTANEOUS USE
  11. METHOTREXATE [Suspect]
     Active Substance: METHOTREXATE
     Dosage: 20 MG, QD
     Route: 048
  12. METHOTREXATE [Suspect]
     Active Substance: METHOTREXATE
     Dosage: 25 MG, QW
     Route: 048
  13. METHOTREXATE [Suspect]
     Active Substance: METHOTREXATE
     Dosage: 25 MG, QD
     Route: 013
  14. METHOTREXATE [Suspect]
     Active Substance: METHOTREXATE
     Dosage: 20 MG, QD
     Route: 048
  15. METHOTREXATE [Suspect]
     Active Substance: METHOTREXATE
     Dosage: 25 MG, QD
     Route: 048
  16. METHOTREXATE [Suspect]
     Active Substance: METHOTREXATE
     Dosage: 20 MG, QW
     Route: 013
  17. METHOTREXATE [Suspect]
     Active Substance: METHOTREXATE
     Route: 048
  18. LEVOTHYROXINE SODIUM [Concomitant]
     Active Substance: LEVOTHYROXINE SODIUM
     Indication: Product used for unknown indication
  19. MYCOPHENOLATE MOFETIL [Suspect]
     Active Substance: MYCOPHENOLATE MOFETIL
     Indication: Product used for unknown indication
  20. DICLOFENAC POTASSIUM [Suspect]
     Active Substance: DICLOFENAC POTASSIUM
     Indication: Product used for unknown indication
     Route: 048
  21. DICLOFENAC POTASSIUM [Suspect]
     Active Substance: DICLOFENAC POTASSIUM
  22. OMEGA-3 ACIDS [Concomitant]
     Active Substance: OMEGA-3 FATTY ACIDS
     Indication: Product used for unknown indication
  23. DICLOFENAC SODIUM [Suspect]
     Active Substance: DICLOFENAC SODIUM
     Indication: Product used for unknown indication
  24. DICLOFENAC SODIUM [Suspect]
     Active Substance: DICLOFENAC SODIUM
  25. DICLOFENAC SODIUM [Suspect]
     Active Substance: DICLOFENAC SODIUM
  26. FOLIC ACID [Suspect]
     Active Substance: FOLIC ACID
     Indication: Rheumatoid arthritis
     Dosage: 5 MG, QD
  27. FOLIC ACID [Suspect]
     Active Substance: FOLIC ACID
  28. FOLIC ACID [Suspect]
     Active Substance: FOLIC ACID
  29. FOLIC ACID [Suspect]
     Active Substance: FOLIC ACID
     Route: 048
  30. FOLIC ACID [Suspect]
     Active Substance: FOLIC ACID
     Route: 048
  31. FOLIC ACID [Suspect]
     Active Substance: FOLIC ACID
     Dosage: 1 MG, QD
  32. FOLIC ACID [Suspect]
     Active Substance: FOLIC ACID
  33. FOLIC ACID [Suspect]
     Active Substance: FOLIC ACID
  34. FOLIC ACID [Suspect]
     Active Substance: FOLIC ACID
     Dosage: 1 MG, QD
  35. FOLIC ACID [Suspect]
     Active Substance: FOLIC ACID
     Route: 048
  36. FOLIC ACID [Suspect]
     Active Substance: FOLIC ACID
  37. FOLIC ACID [Suspect]
     Active Substance: FOLIC ACID
  38. FOLIC ACID [Suspect]
     Active Substance: FOLIC ACID
     Route: 048
  39. FOLIC ACID [Suspect]
     Active Substance: FOLIC ACID
     Route: 048
  40. FOLIC ACID [Suspect]
     Active Substance: FOLIC ACID
     Route: 048
  41. FOLIC ACID [Suspect]
     Active Substance: FOLIC ACID
  42. FOLIC ACID [Suspect]
     Active Substance: FOLIC ACID
  43. MELOXICAM [Concomitant]
     Active Substance: MELOXICAM
     Indication: Product used for unknown indication
  44. ACETAMINOPHEN [Suspect]
     Active Substance: ACETAMINOPHEN
     Indication: Rheumatoid arthritis
  45. ACETAMINOPHEN [Suspect]
     Active Substance: ACETAMINOPHEN
  46. COSENTYX [Suspect]
     Active Substance: SECUKINUMAB
     Indication: Psoriatic arthropathy
     Route: 005
  47. COSENTYX [Suspect]
     Active Substance: SECUKINUMAB
     Indication: Rheumatoid arthritis
  48. PREGABALIN [Suspect]
     Active Substance: PREGABALIN
     Indication: Product used for unknown indication
  49. RITUXIMAB [Suspect]
     Active Substance: RITUXIMAB
     Indication: Rheumatoid arthritis
  50. RITUXIMAB [Suspect]
     Active Substance: RITUXIMAB
     Route: 042
  51. RITUXIMAB [Suspect]
     Active Substance: RITUXIMAB
  52. ERELZI [Suspect]
     Active Substance: ETANERCEPT-SZZS
     Indication: Rheumatoid arthritis
     Dosage: 50 MG, QW; ROA: SUBCUTANEOUS
  53. ERELZI [Suspect]
     Active Substance: ETANERCEPT-SZZS
  54. ERELZI [Suspect]
     Active Substance: ETANERCEPT-SZZS
     Dosage: 50 MG, QW, ROA: SUBCUTANEOUS
  55. ERELZI [Suspect]
     Active Substance: ETANERCEPT-SZZS
     Dosage: 50 MG, QW, ROA: SUBCUTANEOUS
  56. ADALIMUMAB [Suspect]
     Active Substance: ADALIMUMAB
     Indication: Psoriatic arthropathy
  57. ADALIMUMAB [Suspect]
     Active Substance: ADALIMUMAB
     Indication: Rheumatoid arthritis
     Route: 048
  58. ADALIMUMAB [Suspect]
     Active Substance: ADALIMUMAB
  59. ADALIMUMAB [Suspect]
     Active Substance: ADALIMUMAB
  60. OXYCODONE HYDROCHLORIDE [Suspect]
     Active Substance: OXYCODONE HYDROCHLORIDE
     Indication: Product used for unknown indication
  61. ALENDRONIC ACID [Suspect]
     Active Substance: ALENDRONIC ACID
     Indication: Rheumatoid arthritis
  62. ALENDRONIC ACID [Suspect]
     Active Substance: ALENDRONIC ACID
     Route: 048
  63. LEFLUNOMIDE [Suspect]
     Active Substance: LEFLUNOMIDE
     Indication: Rheumatoid arthritis
     Route: 048
  64. LEFLUNOMIDE [Suspect]
     Active Substance: LEFLUNOMIDE
  65. LEFLUNOMIDE [Suspect]
     Active Substance: LEFLUNOMIDE
     Dosage: 20 MG, QD
     Route: 048
  66. ALENDRONATE SODIUM [Suspect]
     Active Substance: ALENDRONATE SODIUM
     Indication: Rheumatoid arthritis
  67. ALENDRONATE SODIUM [Suspect]
     Active Substance: ALENDRONATE SODIUM
  68. ALENDRONATE SODIUM [Suspect]
     Active Substance: ALENDRONATE SODIUM
     Route: 048
  69. LISINOPRIL [Concomitant]
     Active Substance: LISINOPRIL
     Indication: Product used for unknown indication
  70. HYRIMOZ [Suspect]
     Active Substance: ADALIMUMAB-ADAZ
     Indication: Psoriatic arthropathy
  71. MAGNESIUM [Concomitant]
     Active Substance: MAGNESIUM
     Indication: Product used for unknown indication
  72. PANTOPRAZOLE [Suspect]
     Active Substance: PANTOPRAZOLE
     Indication: Product used for unknown indication
  73. METHOTREXATE [Suspect]
     Active Substance: METHOTREXATE
     Indication: Rheumatoid arthritis
     Route: 048
  74. METHOTREXATE [Suspect]
     Active Substance: METHOTREXATE
     Dosage: 500 MG, BID
  75. METHOTREXATE [Suspect]
     Active Substance: METHOTREXATE
     Dosage: 20 MG, QD
  76. METHOTREXATE [Suspect]
     Active Substance: METHOTREXATE
     Route: 048
  77. METHOTREXATE [Suspect]
     Active Substance: METHOTREXATE
  78. METHOTREXATE [Suspect]
     Active Substance: METHOTREXATE
     Route: 048
  79. METHOTREXATE [Suspect]
     Active Substance: METHOTREXATE
  80. METHOTREXATE [Suspect]
     Active Substance: METHOTREXATE
     Dosage: 25 MG, QW,  ROA: SUBCUTANEOUS
  81. METHOTREXATE [Suspect]
     Active Substance: METHOTREXATE
     Dosage: 25 MG, QD
     Route: 048
  82. METHOTREXATE [Suspect]
     Active Substance: METHOTREXATE
     Route: 013
  83. METHOTREXATE [Suspect]
     Active Substance: METHOTREXATE
     Route: 048
  84. METHOTREXATE [Suspect]
     Active Substance: METHOTREXATE
     Dosage: 20 MG, QD
     Route: 048
  85. METHOTREXATE [Suspect]
     Active Substance: METHOTREXATE
     Dosage: 20 MG, QW
  86. METHOTREXATE [Suspect]
     Active Substance: METHOTREXATE
  87. METHOTREXATE [Suspect]
     Active Substance: METHOTREXATE
     Dosage: 2 DOSAGE FORM, QD
     Route: 048
  88. METHOTREXATE [Suspect]
     Active Substance: METHOTREXATE
     Route: 048
  89. METHOTREXATE [Suspect]
     Active Substance: METHOTREXATE
  90. METHOTREXATE [Suspect]
     Active Substance: METHOTREXATE
     Dosage: 25 MG, QD, ROA: SUBCUTANEOUS
  91. METHOTREXATE [Suspect]
     Active Substance: METHOTREXATE
     Dosage: 25 MG, QD
     Route: 013
  92. METHOTREXATE [Suspect]
     Active Substance: METHOTREXATE
  93. METHOTREXATE [Suspect]
     Active Substance: METHOTREXATE
     Route: 013
  94. LANSOPRAZOLE [Concomitant]
     Active Substance: LANSOPRAZOLE
     Indication: Product used for unknown indication

REACTIONS (69)
  - Type 2 diabetes mellitus [Fatal]
  - Abdominal pain [Fatal]
  - Sleep disorder due to general medical condition, insomnia type [Fatal]
  - Contraindicated product administered [Fatal]
  - Rheumatoid factor positive [Fatal]
  - Discomfort [Fatal]
  - Sciatica [Fatal]
  - C-reactive protein abnormal [Fatal]
  - Hypoaesthesia [Fatal]
  - Pregnancy [Fatal]
  - Road traffic accident [Fatal]
  - Maternal exposure timing unspecified [Fatal]
  - Pyrexia [Fatal]
  - Arthropathy [Fatal]
  - Stomatitis [Fatal]
  - Maternal exposure during pregnancy [Fatal]
  - Wheezing [Fatal]
  - Live birth [Fatal]
  - Vomiting [Fatal]
  - Ill-defined disorder [Fatal]
  - Sleep disorder [Fatal]
  - Condition aggravated [Fatal]
  - Therapeutic product effect decreased [Fatal]
  - Asthenia [Fatal]
  - C-reactive protein [Fatal]
  - Exposure during pregnancy [Fatal]
  - Rheumatic fever [Fatal]
  - Dizziness [Fatal]
  - Weight increased [Fatal]
  - Abdominal pain upper [Fatal]
  - Sinusitis [Fatal]
  - Confusional state [Fatal]
  - Rheumatoid arthritis [Fatal]
  - Death neonatal [Fatal]
  - Swollen joint count increased [Fatal]
  - Product use issue [Fatal]
  - Psoriatic arthropathy [Fatal]
  - Adverse drug reaction [Fatal]
  - Wound [Fatal]
  - Hypersensitivity [Fatal]
  - Blood cholesterol increased [Fatal]
  - Drug intolerance [Fatal]
  - Off label use [Fatal]
  - Bursitis [Fatal]
  - Systemic lupus erythematosus [Fatal]
  - Abdominal discomfort [Fatal]
  - Therapy non-responder [Fatal]
  - Osteoarthritis [Fatal]
  - Swelling [Fatal]
  - Injury [Fatal]
  - Synovitis [Fatal]
  - Nasopharyngitis [Fatal]
  - Drug ineffective [Fatal]
  - Pruritus [Fatal]
  - Musculoskeletal stiffness [Fatal]
  - Treatment failure [Fatal]
  - Alopecia [Fatal]
  - Rash [Fatal]
  - Intentional product use issue [Fatal]
  - Urticaria [Fatal]
  - Arthralgia [Fatal]
  - Blister [Fatal]
  - Folliculitis [Fatal]
  - Adverse event [Fatal]
  - Asthma [Fatal]
  - Anti-cyclic citrullinated peptide antibody positive [Fatal]
  - Oedema [Fatal]
  - Diarrhoea [Fatal]
  - Prescribed overdose [Fatal]
